FAERS Safety Report 5205492-6 (Version None)
Quarter: 2006Q4

REPORT INFORMATION
  Report Type: 
  Country: None (occurrence: None)
  Receive Date: 20061027
  Receipt Date: 20051104
  Transmission Date: 20070319
  Serious: Yes (Other)
  Sender: FDA-Public Use
  Company Number: HQWYE454708NOV05

PATIENT
  Age: 50 Year
  Sex: Female
  Weight: 71.28 kg

DRUGS (2)
  1. PREMARIN [Suspect]
     Indication: MENOPAUSE
     Dosage: 1 TABLET 1X PER 1 DAY, ORAL
     Route: 048
     Dates: start: 20051101
  2. ZANTAC [Concomitant]

REACTIONS (3)
  - BREAST TENDERNESS [None]
  - JOINT SWELLING [None]
  - OEDEMA PERIPHERAL [None]
